FAERS Safety Report 9260894 (Version 1)
Quarter: 2013Q2

REPORT INFORMATION
  Report Type: Spontaneous
  Country: US (occurrence: US)
  Receive Date: 20130429
  Receipt Date: 20130429
  Transmission Date: 20140414
  Serious: No
  Sender: FDA-Public Use
  Company Number: US-AMGEN-USASP2012023569

PATIENT
  Age: 75 Year
  Sex: Female

DRUGS (9)
  1. SENSIPAR [Suspect]
     Indication: HYPERPARATHYROIDISM PRIMARY
     Dosage: UNK
     Route: 048
     Dates: start: 201101
  2. SENSIPAR [Suspect]
     Dosage: 30 MG, BID
  3. SENSIPAR [Suspect]
     Dosage: 30 MG, UNK
  4. VITAMIN D [Concomitant]
     Dosage: 1 IU, QD
  5. LEVOTHYROXINE [Concomitant]
  6. COREG [Concomitant]
  7. TRAMADOL [Concomitant]
  8. MAGNESIUM [Concomitant]
  9. FISH OIL [Concomitant]

REACTIONS (2)
  - Dizziness [Not Recovered/Not Resolved]
  - Nausea [Not Recovered/Not Resolved]
